FAERS Safety Report 24460017 (Version 1)
Quarter: 2024Q4

REPORT INFORMATION
  Report Type: Report from Study
  Country: US (occurrence: US)
  Receive Date: 20241018
  Receipt Date: 20241018
  Transmission Date: 20250114
  Serious: No
  Sender: ROCHE
  Company Number: US-ROCHE-3544043

PATIENT
  Age: 58 Year
  Sex: Male

DRUGS (1)
  1. RITUXAN [Suspect]
     Active Substance: RITUXIMAB
     Indication: Rheumatoid arthritis
     Dosage: THEN REPEAT EVERY 4 MONTHS. ANTICIPATED DATE OF TREATMENT: 02/MAY/2022.
     Route: 041

REACTIONS (1)
  - COVID-19 [Recovered/Resolved]
